FAERS Safety Report 8477872-7 (Version None)
Quarter: 2012Q2

REPORT INFORMATION
  Report Type: 
  Country: None (occurrence: None)
  Receive Date: 20120629
  Receipt Date: 20120627
  Transmission Date: 20120825
  Serious: Yes (Life-Threatening)
  Sender: FDA-Public Use
  Company Number: FR-B.I. PHARMACEUTICALS,INC./RIDGEFIELD-2012-FF-00842FF

PATIENT
  Age: 85 Year
  Sex: Female

DRUGS (4)
  1. CRESTOR [Concomitant]
  2. PERINDOPRIL ERBUMINE [Concomitant]
  3. DIGOXIN [Concomitant]
  4. PRADAXA [Suspect]
     Indication: ATRIAL FIBRILLATION
     Dosage: 220 MG
     Route: 048

REACTIONS (5)
  - DYSARTHRIA [None]
  - MUTISM [None]
  - CEREBRAL HAEMORRHAGE [None]
  - CEREBRAL HAEMATOMA [None]
  - DISTURBANCE IN ATTENTION [None]
